FAERS Safety Report 15315647 (Version 1)
Quarter: 2018Q3

REPORT INFORMATION
  Report Type: Spontaneous
  Country: US (occurrence: US)
  Receive Date: 20180815
  Receipt Date: 20180815
  Transmission Date: 20181010
  Serious: Yes (Hospitalization)
  Sender: FDA-Public Use
  Company Number: None

PATIENT
  Age: 69 Year
  Sex: Male

DRUGS (7)
  1. VOTRIENT [Suspect]
     Active Substance: PAZOPANIB HYDROCHLORIDE
     Indication: NEOPLASM MALIGNANT
     Route: 048
     Dates: start: 20180627
  2. LISINOPRIL. [Concomitant]
     Active Substance: LISINOPRIL
  3. VITAMIN D [Concomitant]
     Active Substance: CHOLECALCIFEROL
  4. TACROLIMUS. [Concomitant]
     Active Substance: TACROLIMUS
  5. HYDROCODONE [Concomitant]
     Active Substance: HYDROCODONE
  6. PREDNISONE. [Concomitant]
     Active Substance: PREDNISONE
  7. SIROLIMUS. [Concomitant]
     Active Substance: SIROLIMUS

REACTIONS (1)
  - Joint dislocation [None]

NARRATIVE: CASE EVENT DATE: 20180809
